FAERS Safety Report 8510529 (Version 2)
Quarter: 2012Q4

REPORT INFORMATION
  Report Type: Report from Study
  Country: CA (occurrence: CA)
  Receive Date: 20120413
  Receipt Date: 20120912
  Transmission Date: 20130627
  Serious: Yes (Hospitalization)
  Sender: FDA-Public Use
  Company Number: CA-ROCHE-795413

PATIENT
  Age: 73 None
  Sex: Female
  Weight: 56 kg

DRUGS (15)
  1. ROACTEMRA [Suspect]
     Indication: RHEUMATOID ARTHRITIS
     Route: 042
     Dates: start: 20110512, end: 20110707
  2. ROACTEMRA [Suspect]
     Route: 065
  3. PANTOPRAZOLE [Concomitant]
  4. FUROSEMIDE [Concomitant]
  5. PLAQUENIL [Concomitant]
     Dosage: ALTERNATING 200 MG DAILY
     Route: 065
  6. MORPHINE [Concomitant]
  7. WARFARIN [Concomitant]
  8. CALCIUM SUPPLEMENT [Concomitant]
  9. FOLIC ACID [Concomitant]
  10. FOSAVANCE [Concomitant]
  11. AUROTHIOMALATE [Concomitant]
  12. GOLD INJECTION [Concomitant]
  13. PREDNISONE [Concomitant]
     Route: 065
  14. LISINOPRIL [Concomitant]
  15. AUROTHIOMALATE [Concomitant]

REACTIONS (9)
  - Joint injury [Unknown]
  - Arthritis infective [Not Recovered/Not Resolved]
  - Lower limb fracture [Not Recovered/Not Resolved]
  - Knee arthroplasty [Recovered/Resolved]
  - Fall [Not Recovered/Not Resolved]
  - Sepsis [Unknown]
  - Pain in extremity [Unknown]
  - Musculoskeletal stiffness [Unknown]
  - Muscle rupture [Unknown]
